FAERS Safety Report 22281941 (Version 1)
Quarter: 2023Q2

REPORT INFORMATION
  Report Type: Report from Study
  Country: AR (occurrence: AR)
  Receive Date: 20230504
  Receipt Date: 20230504
  Transmission Date: 20230721
  Serious: Yes (Other)
  Sender: FDA-Public Use
  Company Number: AR-ABBVIE-22K-007-4524642-00

PATIENT
  Sex: Male

DRUGS (2)
  1. HUMIRA [Suspect]
     Active Substance: ADALIMUMAB
     Indication: Uveitis
     Route: 058
     Dates: start: 20211013
  2. HUMIRA [Suspect]
     Active Substance: ADALIMUMAB
     Route: 058

REACTIONS (6)
  - Cataract [Not Recovered/Not Resolved]
  - Respiratory disorder [Recovering/Resolving]
  - Uveitis [Not Recovered/Not Resolved]
  - Pain [Not Recovered/Not Resolved]
  - Optic atrophy [Unknown]
  - Blindness [Unknown]

NARRATIVE: CASE EVENT DATE: 20220101
